FAERS Safety Report 15143649 (Version 1)
Quarter: 2018Q3

REPORT INFORMATION
  Report Type: Spontaneous
  Country: RU (occurrence: RU)
  Receive Date: 20180713
  Receipt Date: 20180713
  Transmission Date: 20181010
  Serious: Yes (Hospitalization)
  Sender: FDA-Public Use
  Company Number: RU-PFIZER INC-2018280299

PATIENT
  Sex: Female

DRUGS (3)
  1. LIPRIMAR [Suspect]
     Active Substance: ATORVASTATIN CALCIUM
     Dosage: 10 MG, UNK
     Dates: start: 2016
  2. ENALAPRIL [Concomitant]
     Active Substance: ENALAPRIL
     Indication: HYPERTENSION
     Dosage: UNK
  3. NITROFURAN [Concomitant]
     Active Substance: NITROFURANTOIN
     Indication: CALCULUS URINARY
     Dosage: UNK

REACTIONS (2)
  - Aortic aneurysm rupture [Unknown]
  - Subdural haemorrhage [Unknown]
